FAERS Safety Report 5231507-5 (Version None)
Quarter: 2007Q1

REPORT INFORMATION
  Report Type: 
  Country: None (occurrence: None)
  Receive Date: 20070206
  Receipt Date: 20070125
  Transmission Date: 20070707
  Serious: Yes (Death)
  Sender: FDA-Public Use
  Company Number: US-PURDUE-USA_2007_0026139

PATIENT
  Age: 47 Year
  Sex: Male
  Weight: 104 kg

DRUGS (4)
  1. CAFFEINE [Suspect]
     Indication: DRUG USE FOR UNKNOWN INDICATION
  2. NICOTINE [Suspect]
     Indication: DRUG USE FOR UNKNOWN INDICATION
  3. OXYCODONE HCL [Suspect]
     Indication: DRUG ABUSER
  4. ALCOHOL [Suspect]
     Indication: ALCOHOLISM

REACTIONS (3)
  - CORONARY ARTERY DISEASE [None]
  - MULTIPLE DRUG OVERDOSE ACCIDENTAL [None]
  - RESPIRATORY DEPRESSION [None]
